FAERS Safety Report 22016802 (Version 2)
Quarter: 2023Q2

REPORT INFORMATION
  Report Type: Spontaneous
  Country: US (occurrence: US)
  Receive Date: 20230221
  Receipt Date: 20230406
  Transmission Date: 20230722
  Serious: No
  Sender: FDA-Public Use
  Company Number: US-PFIZER INC-202300038396

PATIENT
  Age: 60 Year
  Sex: Female
  Weight: 70.76 kg

DRUGS (1)
  1. MENEST [Suspect]
     Active Substance: ESTROGENS, ESTERIFIED
     Indication: Hysterectomy
     Dosage: TAKES 2 TABLETS ONCE A DAY, 0.625MG
     Route: 048

REACTIONS (1)
  - No adverse event [Unknown]
